FAERS Safety Report 14572925 (Version 2)
Quarter: 2018Q3

REPORT INFORMATION
  Report Type: Spontaneous
  Country: US (occurrence: US)
  Receive Date: 20180226
  Receipt Date: 20180723
  Transmission Date: 20181010
  Serious: Yes (Hospitalization)
  Sender: FDA-Public Use
  Company Number: US-PFIZER INC-2018080730

PATIENT
  Age: 52 Year
  Sex: Female
  Weight: 56.69 kg

DRUGS (2)
  1. LYRICA [Suspect]
     Active Substance: PREGABALIN
     Dosage: UNK
  2. NEURONTIN [Suspect]
     Active Substance: GABAPENTIN
     Dosage: 300 MG, 3X/DAY(3 TIMES DAILY)
     Route: 048

REACTIONS (2)
  - Pneumonia [Unknown]
  - Feeling abnormal [Unknown]
